FAERS Safety Report 10032224 (Version 2)
Quarter: 2014Q2

REPORT INFORMATION
  Report Type: Report from Study
  Country: US (occurrence: US)
  Receive Date: 20140324
  Receipt Date: 20140623
  Transmission Date: 20141212
  Serious: Yes (Hospitalization)
  Sender: FDA-Public Use
  Company Number: US-ACTELION-A-NJ2014-96145

PATIENT
  Age: 74 Year
  Sex: Female

DRUGS (2)
  1. MACITENTAN [Suspect]
     Indication: PULMONARY HYPERTENSION
     Dosage: 10 MG, UNK
     Route: 048
     Dates: start: 20140110
  2. AMITRIPTYLINE [Concomitant]

REACTIONS (2)
  - Convulsion [Not Recovered/Not Resolved]
  - Fall [Recovering/Resolving]
